FAERS Safety Report 4432736-0 (Version None)
Quarter: 2004Q3

REPORT INFORMATION
  Report Type: 
  Country: None (occurrence: None)
  Receive Date: 20040820
  Receipt Date: 20040817
  Transmission Date: 20050211
  Serious: Yes (Life-Threatening, Hospitalization)
  Sender: FDA-Public Use
  Company Number: 200412465GDS

PATIENT
  Age: 62 Year
  Sex: Male

DRUGS (5)
  1. ADIRO (ACETYLSALICYLIC ACID) [Suspect]
     Dosage: ORAL
     Route: 048
     Dates: end: 20040609
  2. DIAMICRON (GLICLAZIDE) [Suspect]
     Indication: DIABETES MELLITUS
     Dosage: ORAL
     Route: 048
     Dates: end: 20040609
  3. ATORVASTATIN [Concomitant]
  4. DIANBEN [Concomitant]
  5. FELDENE [Concomitant]

REACTIONS (1)
  - AGRANULOCYTOSIS [None]
